FAERS Safety Report 5059703-0 (Version None)
Quarter: 2006Q3

REPORT INFORMATION
  Report Type: 
  Country: None (occurrence: None)
  Receive Date: 20060724
  Receipt Date: 20060616
  Transmission Date: 20061208
  Serious: Yes (Other)
  Sender: FDA-Public Use
  Company Number: US-ROCHE-452298

PATIENT
  Age: 55 Year
  Sex: Male

DRUGS (2)
  1. PEGASYS [Suspect]
     Indication: HEPATITIS C
     Route: 058
     Dates: start: 20060331
  2. COPEGUS [Suspect]
     Indication: HEPATITIS C
     Route: 048
     Dates: start: 20060331

REACTIONS (5)
  - DISORIENTATION [None]
  - EMPHYSEMA [None]
  - INCREASED APPETITE [None]
  - PYREXIA [None]
  - WEIGHT DECREASED [None]
